FAERS Safety Report 24095459 (Version 6)
Quarter: 2025Q2

REPORT INFORMATION
  Report Type: Spontaneous
  Country: DE (occurrence: DE)
  Receive Date: 20240716
  Receipt Date: 20250402
  Transmission Date: 20250716
  Serious: Yes (Hospitalization)
  Sender: ACCORD
  Company Number: DE-Accord-434493

PATIENT
  Age: 17 Year
  Sex: Female
  Weight: 63.9 kg

DRUGS (26)
  1. METHOTREXATE [Suspect]
     Active Substance: METHOTREXATE
     Indication: Chemotherapy
     Route: 042
     Dates: start: 20240522, end: 20240524
  2. CYTARABINE [Suspect]
     Active Substance: CYTARABINE
     Indication: Chemotherapy
     Route: 042
     Dates: start: 20240526, end: 20240526
  3. CYCLOPHOSPHAMIDE [Suspect]
     Active Substance: CYCLOPHOSPHAMIDE
     Indication: Chemotherapy
     Route: 042
     Dates: start: 20240523, end: 20240525
  4. VINCRISTINE SULFATE [Suspect]
     Active Substance: VINCRISTINE SULFATE
     Indication: Chemotherapy
     Route: 042
     Dates: start: 20240522, end: 20240527
  5. INOTUZUMAB OZOGAMICIN [Concomitant]
     Active Substance: INOTUZUMAB OZOGAMICIN
     Indication: Leukaemia recurrent
     Route: 042
     Dates: start: 20240422, end: 20240506
  6. DEXAMETHASONE [Concomitant]
     Active Substance: DEXAMETHASONE
     Indication: Chemotherapy
     Route: 042
     Dates: start: 20240522, end: 20240527
  7. PEGASPARGASE [Concomitant]
     Active Substance: PEGASPARGASE
     Indication: Chemotherapy
     Route: 042
     Dates: start: 20240527, end: 20240527
  8. AMBISOME [Concomitant]
     Active Substance: AMPHOTERICIN B
     Indication: Leukaemia recurrent
     Route: 042
     Dates: start: 20240419, end: 20240507
  9. COTRIM [Concomitant]
     Active Substance: SULFAMETHOXAZOLE\TRIMETHOPRIM
     Indication: Infection prophylaxis
     Route: 048
  10. OMEPRAZOLE [Concomitant]
     Active Substance: OMEPRAZOLE
     Indication: Leukaemia recurrent
     Dates: start: 20240418, end: 20240501
  11. COTRIMOXAZOLE [Concomitant]
     Active Substance: SULFAMETHOXAZOLE\TRIMETHOPRIM
     Indication: Leukaemia recurrent
     Route: 048
     Dates: start: 20240420, end: 20240505
  12. ACETAMINOPHEN [Concomitant]
     Active Substance: ACETAMINOPHEN
     Indication: Leukaemia recurrent
     Route: 042
     Dates: start: 20240504, end: 20240504
  13. ACETAMINOPHEN [Concomitant]
     Active Substance: ACETAMINOPHEN
     Indication: Leukaemia recurrent
     Route: 042
     Dates: start: 20240429, end: 20240501
  14. ONDANSETRON [Concomitant]
     Active Substance: ONDANSETRON
     Indication: Leukaemia recurrent
     Route: 042
     Dates: start: 20240429, end: 20240429
  15. PIPERACILLIN SODIUM\TAZOBACTAM SODIUM [Concomitant]
     Active Substance: PIPERACILLIN SODIUM\TAZOBACTAM SODIUM
     Indication: Leukaemia recurrent
     Route: 042
     Dates: start: 20240503, end: 20240503
  16. CASPOFUNGIN [Concomitant]
     Active Substance: CASPOFUNGIN
     Indication: Leukaemia recurrent
     Route: 042
     Dates: start: 20240501, end: 20240501
  17. VANCOMYCIN [Concomitant]
     Active Substance: VANCOMYCIN
     Indication: Leukaemia recurrent
     Route: 042
     Dates: start: 20240428, end: 20240501
  18. POTASSIUM CHLORIDE [Concomitant]
     Active Substance: POTASSIUM CHLORIDE
     Indication: Leukaemia recurrent
     Route: 048
     Dates: start: 20240428, end: 20240503
  19. LACTULOSE [Concomitant]
     Active Substance: LACTULOSE
     Indication: Leukaemia recurrent
     Route: 048
     Dates: start: 20240503, end: 20240505
  20. LACTULOSE [Concomitant]
     Active Substance: LACTULOSE
     Indication: Leukaemia recurrent
     Route: 048
     Dates: start: 20240506, end: 20240507
  21. ACETAMINOPHEN [Concomitant]
     Active Substance: ACETAMINOPHEN
     Indication: Leukaemia recurrent
     Route: 042
     Dates: start: 20240502, end: 20240502
  22. ACETAMINOPHEN [Concomitant]
     Active Substance: ACETAMINOPHEN
     Indication: Leukaemia recurrent
     Route: 042
     Dates: start: 20240503, end: 20240503
  23. PIPERACILLIN SODIUM\TAZOBACTAM SODIUM [Concomitant]
     Active Substance: PIPERACILLIN SODIUM\TAZOBACTAM SODIUM
     Indication: Leukaemia recurrent
     Route: 042
     Dates: start: 20240423, end: 20240502
  24. CASPOFUNGIN [Concomitant]
     Active Substance: CASPOFUNGIN
     Indication: Leukaemia recurrent
     Route: 042
     Dates: start: 20240502, end: 20240506
  25. VANCOMYCIN [Concomitant]
     Active Substance: VANCOMYCIN
     Indication: Leukaemia recurrent
     Route: 042
     Dates: start: 20240502, end: 20240502
  26. AMBISOME [Concomitant]
     Active Substance: AMPHOTERICIN B
     Indication: Antifungal prophylaxis
     Route: 042
     Dates: start: 20240531, end: 20240531

REACTIONS (2)
  - Bone marrow failure [Recovered/Resolved]
  - Mucosal inflammation [Recovered/Resolved]

NARRATIVE: CASE EVENT DATE: 20240529
